FAERS Safety Report 20691467 (Version 1)
Quarter: 2022Q2

REPORT INFORMATION
  Report Type: Spontaneous
  Country: US (occurrence: None)
  Receive Date: 20220406
  Receipt Date: 20220406
  Transmission Date: 20220721
  Serious: Yes (Death)
  Sender: FDA-Public Use
  Company Number: None

PATIENT
  Age: 32 Year
  Sex: Female

DRUGS (2)
  1. PIQRAY [Suspect]
     Active Substance: ALPELISIB
     Indication: Breast cancer
     Dosage: 600MG QD PO?
     Route: 048
     Dates: start: 20200717, end: 20220303
  2. VOTRIENT [Suspect]
     Active Substance: PAZOPANIB HYDROCHLORIDE
     Indication: Renal cancer
     Dosage: 200 QD PO
     Route: 048
     Dates: start: 20220105, end: 20220223

REACTIONS (1)
  - Death [None]

NARRATIVE: CASE EVENT DATE: 20220406
